FAERS Safety Report 16494262 (Version 2)
Quarter: 2019Q3

REPORT INFORMATION
  Report Type: Spontaneous
  Country: FR (occurrence: FR)
  Receive Date: 20190628
  Receipt Date: 20190717
  Transmission Date: 20191004
  Serious: Yes (Life-Threatening, Hospitalization, Other)
  Sender: FDA-Public Use
  Company Number: FR-SA-2019SA174472

PATIENT
  Age: 39 Year
  Sex: Female

DRUGS (4)
  1. BROMAZEPAM [Suspect]
     Active Substance: BROMAZEPAM
     Indication: SUICIDE ATTEMPT
     Dosage: UNK UNK, 1X
     Route: 048
  2. PAROXETINE HYDROCHLORIDE. [Suspect]
     Active Substance: PAROXETINE HYDROCHLORIDE
     Indication: SUICIDE ATTEMPT
     Dosage: UNK UNK, 1X
     Route: 048
  3. ZOLPIDEM TARTRATE. [Suspect]
     Active Substance: ZOLPIDEM TARTRATE
     Indication: SUICIDE ATTEMPT
     Dosage: UNK UNK, 1X
     Route: 048
  4. HYDROXYCHLOROQUINE [Suspect]
     Active Substance: HYDROXYCHLOROQUINE
     Indication: SUICIDE ATTEMPT
     Dosage: 12 G, 1X
     Route: 048

REACTIONS (20)
  - Electrocardiogram T wave amplitude decreased [Recovered/Resolved]
  - Depressed level of consciousness [Recovering/Resolving]
  - Systolic dysfunction [Recovered/Resolved]
  - Altered state of consciousness [Recovering/Resolving]
  - Haemodynamic instability [Recovering/Resolving]
  - Hyperlactacidaemia [Recovered/Resolved]
  - Overdose [Unknown]
  - Hypotension [Unknown]
  - Supraventricular tachycardia [Unknown]
  - Prothrombin time shortened [Unknown]
  - Electrocardiogram QRS complex prolonged [Recovered/Resolved]
  - Cardiac failure [Recovering/Resolving]
  - Loss of consciousness [Recovered/Resolved]
  - Metabolic acidosis [Recovered/Resolved]
  - Ventricular fibrillation [Recovered/Resolved]
  - Hypokalaemia [Recovered/Resolved]
  - Cardiogenic shock [Recovering/Resolving]
  - Ventricular arrhythmia [Recovered/Resolved]
  - Electrocardiogram ST segment depression [Recovered/Resolved]
  - Hepatocellular injury [Unknown]
